FAERS Safety Report 8187689-9 (Version None)
Quarter: 2012Q1

REPORT INFORMATION
  Report Type: 
  Country: None (occurrence: None)
  Receive Date: 20120306
  Receipt Date: 20120302
  Transmission Date: 20120608
  Serious: Yes (Death, Hospitalization)
  Sender: FDA-Public Use
  Company Number: DE-ASTRAZENECA-2012SE14753

PATIENT
  Age: 69 Year
  Sex: Female

DRUGS (15)
  1. OMEPRAZOLE [Suspect]
     Indication: GASTRIC ULCER
     Route: 048
     Dates: start: 20091101, end: 20100714
  2. FUROSEMIDE [Suspect]
     Route: 048
     Dates: start: 20100101, end: 20100711
  3. VANCOMYCIN [Concomitant]
  4. ANALGILASA [Suspect]
     Indication: OSTEOARTHRITIS
     Route: 048
     Dates: start: 20091101, end: 20100714
  5. MEROPENEM [Concomitant]
  6. ACETAMINOPHEN [Suspect]
     Route: 048
     Dates: start: 20100101, end: 20100714
  7. ALLOPURINOL [Suspect]
     Indication: HYPERURICAEMIA
     Dates: start: 20100301, end: 20100714
  8. DICLOFENAC SODIUM [Suspect]
     Route: 048
     Dates: start: 20090101, end: 20100101
  9. NITROGLYCERIN [Concomitant]
  10. AMBISOME [Concomitant]
     Indication: ASPERGILLOSIS
  11. LOVAZA [Suspect]
     Route: 048
     Dates: start: 20100101, end: 20100714
  12. DIPYRONE TAB [Suspect]
     Dates: start: 20091001, end: 20100101
  13. PIPERACILLIN AND TAZOBACTAM [Concomitant]
     Indication: PYREXIA
  14. MICARDIS HCT [Suspect]
     Indication: HYPERTENSION
     Route: 048
     Dates: start: 20100301, end: 20100714
  15. LINEZOLID [Concomitant]

REACTIONS (4)
  - PANCYTOPENIA [None]
  - ASTHENIA [None]
  - APLASTIC ANAEMIA [None]
  - PETECHIAE [None]
